FAERS Safety Report 4823017-1 (Version None)
Quarter: 2005Q4

REPORT INFORMATION
  Report Type: 
  Country: None (occurrence: None)
  Receive Date: 20051104
  Receipt Date: 20051026
  Transmission Date: 20060501
  Serious: Yes (Other)
  Sender: FDA-Public Use
  Company Number: 2005-03824

PATIENT
  Age: 54 Year
  Sex: Female

DRUGS (2)
  1. FERRLECIT [Suspect]
     Indication: IRON DEFICIENCY ANAEMIA
     Dosage: 250 MG IN 200ML NS OVER 2 HOUR, INTRAVENOUS
     Route: 042
     Dates: start: 20050711, end: 20050711
  2. FERRLECIT [Suspect]

REACTIONS (7)
  - BRADYCARDIA [None]
  - EXTREMITY CONTRACTURE [None]
  - EYE ROLLING [None]
  - HYPOTENSION [None]
  - INFUSION RELATED REACTION [None]
  - LOSS OF CONSCIOUSNESS [None]
  - URINARY INCONTINENCE [None]
